FAERS Safety Report 9320497 (Version 1)
Quarter: 2013Q2

REPORT INFORMATION
  Report Type: Report from Study
  Country: US (occurrence: US)
  Receive Date: 20130530
  Receipt Date: 20130530
  Transmission Date: 20140414
  Serious: Yes (Hospitalization)
  Sender: FDA-Public Use
  Company Number: GXBR2013US001140

PATIENT
  Age: 79 Year
  Sex: Female
  Weight: 48.98 kg

DRUGS (10)
  1. ENOXAPARIN SODIUM [Suspect]
     Indication: THROMBOSIS PROPHYLAXIS
     Dosage: 60 MG, BID
     Route: 058
     Dates: start: 201301
  2. CHEMOTHERAPEUTICS [Suspect]
     Indication: LUNG NEOPLASM MALIGNANT
     Dosage: UNK DF, UNK
  3. RADIATION THERAPY [Suspect]
     Indication: LUNG NEOPLASM MALIGNANT
     Dosage: UNK DF, UNK
  4. LISINOPRIL/HYDROCHLOROTHIAZIDE [Concomitant]
     Indication: HYPERTENSION
     Dosage: LISINOPRIL 10MG/HCTZ 12.5MG, QD
     Route: 048
  5. OMEPRAZOLE [Concomitant]
     Dosage: UNK DF, QD
     Route: 048
  6. DILANTIN                                /AUS/ [Concomitant]
     Indication: CONVULSION
     Dosage: 300 MG, QOD
  7. DILANTIN                                /AUS/ [Concomitant]
     Dosage: 200 MG, QOD
  8. FOLIC ACID [Concomitant]
     Dosage: UNK DF, UNK
  9. OXYCODONE [Concomitant]
     Indication: PAIN
     Dosage: UNK DF, PRN
     Route: 048
  10. DAILY MULTIVITAMIN [Concomitant]
     Dosage: 1 DF, QD
     Route: 048

REACTIONS (2)
  - Clostridium difficile colitis [Recovering/Resolving]
  - Weight decreased [Recovering/Resolving]
